FAERS Safety Report 20539459 (Version 1)
Quarter: 2022Q1

REPORT INFORMATION
  Report Type: Spontaneous
  Country: CN (occurrence: CN)
  Receive Date: 20220302
  Receipt Date: 20220302
  Transmission Date: 20220424
  Serious: Yes (Hospitalization)
  Sender: FDA-Public Use
  Company Number: CN-BAYER-2021-212369

PATIENT
  Age: 66 Year
  Sex: Male

DRUGS (1)
  1. XARELTO [Suspect]
     Active Substance: RIVAROXABAN
     Indication: Pulmonary embolism
     Dosage: 20 MG, QD
     Route: 048
     Dates: start: 20210226, end: 20210810

REACTIONS (10)
  - Gastrointestinal haemorrhage [Recovering/Resolving]
  - Melaena [Recovering/Resolving]
  - Asthenia [Recovering/Resolving]
  - Blood loss anaemia [Recovering/Resolving]
  - Chest discomfort [Unknown]
  - Dyspnoea [Unknown]
  - Post procedural inflammation [Unknown]
  - Incorrect dose administered [Unknown]
  - Inappropriate schedule of product administration [Unknown]
  - Product prescribing issue [Unknown]

NARRATIVE: CASE EVENT DATE: 20210226
